FAERS Safety Report 7770039-7 (Version None)
Quarter: 2011Q3

REPORT INFORMATION
  Report Type: 
  Country: None (occurrence: None)
  Receive Date: 20110922
  Receipt Date: 20100412
  Transmission Date: 20111222
  Serious: No
  Sender: FDA-Public Use
  Company Number: US-ASTRAZENECA-2009UW16334

PATIENT
  Age: 11954 Day
  Sex: Female

DRUGS (8)
  1. SEROQUEL [Suspect]
     Indication: INSOMNIA
     Route: 048
     Dates: start: 20041228, end: 20070701
  2. LEXAPRO [Concomitant]
     Dates: start: 20050127
  3. BYETTA [Concomitant]
     Indication: OBESITY
     Dosage: 5 MCG TWO TIMES A DAY
     Dates: start: 20070101
  4. AMBIEN CR [Concomitant]
     Indication: INSOMNIA
     Dates: start: 20070101
  5. SEROQUEL [Suspect]
     Indication: ANXIETY
     Route: 048
     Dates: start: 20041228, end: 20070701
  6. PHENTERMINE [Concomitant]
     Indication: OBESITY
     Dates: start: 20070101
  7. LT4 [Concomitant]
     Indication: HYPOTHYROIDISM
     Dosage: 50 MCG DAILY
     Dates: start: 20070205
  8. SEROQUEL [Suspect]
     Indication: POST-TRAUMATIC STRESS DISORDER
     Route: 048
     Dates: start: 20041228, end: 20070701

REACTIONS (3)
  - TYPE 2 DIABETES MELLITUS [None]
  - METABOLIC SYNDROME [None]
  - IMPAIRED FASTING GLUCOSE [None]
